FAERS Safety Report 18918485 (Version 1)
Quarter: 2021Q1

REPORT INFORMATION
  Report Type: Spontaneous
  Country: JP (occurrence: JP)
  Receive Date: 20210219
  Receipt Date: 20210219
  Transmission Date: 20210420
  Serious: Yes (Death, Other)
  Sender: FDA-Public Use
  Company Number: JP-VALIDUS PHARMACEUTICALS LLC-JP-2021VAL000083

PATIENT

DRUGS (1)
  1. LASIX [Suspect]
     Active Substance: FUROSEMIDE
     Indication: CARDIAC FAILURE CONGESTIVE
     Dosage: UNK
     Route: 042
     Dates: start: 2017

REACTIONS (7)
  - Circulatory collapse [Unknown]
  - Pulmonary arterial wedge pressure decreased [Unknown]
  - Ventricular arrhythmia [Fatal]
  - Cardiac failure [Unknown]
  - Cardiac output decreased [Unknown]
  - Ventricular fibrillation [Fatal]
  - Decreased ventricular preload [Unknown]

NARRATIVE: CASE EVENT DATE: 2017
